FAERS Safety Report 24855292 (Version 1)
Quarter: 2025Q1

REPORT INFORMATION
  Report Type: Spontaneous
  Country: US (occurrence: US)
  Receive Date: 20250117
  Receipt Date: 20250117
  Transmission Date: 20250409
  Serious: No
  Sender: SUNOVION
  Company Number: US-SMPA-2025SPA000309AA

PATIENT

DRUGS (1)
  1. GEMTESA [Suspect]
     Active Substance: VIBEGRON
     Indication: Incontinence
     Dosage: 75MG ONCE A DAY (START: ^HAD TO BE BETWEEN 25NOV2024 AND 10JAN2025^)
     Route: 048

REACTIONS (1)
  - Urinary retention [Unknown]
